FAERS Safety Report 9218215 (Version 2)
Quarter: 2013Q4

REPORT INFORMATION
  Report Type: Spontaneous
  Country: JP (occurrence: JP)
  Receive Date: 20130408
  Receipt Date: 20131022
  Transmission Date: 20140711
  Serious: Yes (Death, Other)
  Sender: FDA-Public Use
  Company Number: JP-AMGEN-JPNSP2012084430

PATIENT
  Age: 54 Year
  Sex: Male
  Weight: 55 kg

DRUGS (16)
  1. VECTIBIX [Suspect]
     Indication: COLON CANCER
     Dosage: 324 MG, Q2WK
     Route: 041
     Dates: start: 20110425, end: 20110425
  2. IRINOTECAN HYDROCHLORIDE [Suspect]
     Indication: COLON CANCER
     Dosage: 288 MG, Q2WK
     Route: 041
     Dates: start: 20101108, end: 20110404
  3. IRINOTECAN HYDROCHLORIDE [Suspect]
     Dosage: 240 MG, Q2WK
     Route: 041
     Dates: start: 20110425, end: 20110425
  4. 5 FU [Concomitant]
     Indication: COLON CANCER
     Dosage: UNK UNK, Q2WK
     Route: 042
     Dates: start: 20100301
  5. 5 FU [Concomitant]
     Dosage: UNK UNK, Q2WK
     Route: 042
     Dates: start: 20100412
  6. 5 FU [Concomitant]
     Dosage: 640 UNK, Q2WK
     Route: 040
     Dates: start: 20101108, end: 20110404
  7. 5 FU [Concomitant]
     Dosage: 3840 MG, Q2WK
     Route: 041
     Dates: start: 20101108, end: 20110404
  8. 5 FU [Concomitant]
     Dosage: 640 MG, Q2WK
     Route: 040
     Dates: start: 20110425, end: 20110425
  9. 5 FU [Concomitant]
     Dosage: 3840 MG, Q2WK
     Route: 041
     Dates: start: 20110425, end: 20110425
  10. CALCIUM LEVOFOLINATE [Concomitant]
     Indication: COLON CANCER
     Dosage: UNK UNK, Q2WK
     Route: 041
     Dates: start: 20100301
  11. CALCIUM LEVOFOLINATE [Concomitant]
     Dosage: UNK UNK, Q2WK
     Route: 041
     Dates: start: 20100412
  12. CALCIUM LEVOFOLINATE [Concomitant]
     Dosage: UNK UNK, Q2WK
     Route: 041
     Dates: start: 20101108, end: 20110404
  13. CALCIUM LEVOFOLINATE [Concomitant]
     Dosage: UNK UNK, Q2WK
     Route: 041
     Dates: start: 20110425, end: 20110425
  14. DEXART [Concomitant]
     Dosage: UNK
     Route: 042
  15. GRANISETRON HYDROCHLORIDE [Concomitant]
     Dosage: UNK
     Route: 042
  16. GAMOFA [Concomitant]
     Dosage: UNK
     Route: 042

REACTIONS (3)
  - Colon cancer [Fatal]
  - Condition aggravated [Fatal]
  - Neutropenia [Recovered/Resolved]
